FAERS Safety Report 8622262-7 (Version None)
Quarter: 2012Q3

REPORT INFORMATION
  Report Type: 
  Country: None (occurrence: None)
  Receive Date: 20120827
  Receipt Date: 20120816
  Transmission Date: 20120928
  Serious: Yes (Other)
  Sender: FDA-Public Use
  Company Number: CO-009507513-1208COL008810

PATIENT

DRUGS (4)
  1. PEGASYS [Suspect]
  2. VICTRELIS [Suspect]
     Indication: HEPATITIS C
     Dosage: 800 MG, TID
     Route: 048
     Dates: start: 20120710, end: 20120801
  3. EPOETIN [Concomitant]
  4. REBETOL [Suspect]

REACTIONS (2)
  - ASTHENIA [None]
  - PALLOR [None]
